FAERS Safety Report 7226817-6 (Version None)
Quarter: 2011Q1

REPORT INFORMATION
  Report Type: 
  Country: None (occurrence: None)
  Receive Date: 20110110
  Receipt Date: 20110110
  Transmission Date: 20110831
  Serious: Yes (Death)
  Sender: FDA-Public Use
  Company Number: None

PATIENT
  Age: 65 Year
  Sex: Male
  Weight: 166 kg

DRUGS (1)
  1. PREDNISONE [Suspect]
     Indication: TEMPORAL ARTERITIS
     Dates: start: 20100901, end: 20100915

REACTIONS (2)
  - OEDEMA [None]
  - WEIGHT INCREASED [None]
